FAERS Safety Report 4402120-4 (Version None)
Quarter: 2004Q3

REPORT INFORMATION
  Report Type: 
  Country: None (occurrence: None)
  Receive Date: 20040719
  Receipt Date: 20040719
  Transmission Date: 20050211
  Serious: Yes (Death, Hospitalization)
  Sender: FDA-Public Use
  Company Number: None

PATIENT
  Age: 70 Year
  Sex: Female
  Weight: 55.9 kg

DRUGS (3)
  1. FLUOROURACIL [Suspect]
     Indication: RECTAL CANCER
     Dosage: 337 MG /24 HOURS CIV
     Dates: start: 20040617
  2. FLUOROURACIL [Suspect]
     Indication: RECTAL CANCER
     Dosage: 337 MG /24 HOURS CIV
     Dates: start: 20040701
  3. RADIATION THERAPY [Concomitant]

REACTIONS (5)
  - ATHEROSCLEROSIS [None]
  - CORONARY ARTERY DISEASE [None]
  - DEHYDRATION [None]
  - DIARRHOEA [None]
  - MYOCARDIAL INFARCTION [None]
